FAERS Safety Report 6206368-8 (Version None)
Quarter: 2009Q2

REPORT INFORMATION
  Report Type: 
  Country: None (occurrence: None)
  Receive Date: 20090528
  Receipt Date: 20081212
  Transmission Date: 20091009
  Serious: No
  Sender: FDA-Public Use
  Company Number: US-TYCO HEALTHCARE/MALLINCKRODT-T200800162

PATIENT
  Age: 13 Year
  Sex: Female
  Weight: 38.549 kg

DRUGS (6)
  1. METHYLIN ER [Suspect]
     Indication: ATTENTION DEFICIT/HYPERACTIVITY DISORDER
     Dosage: 3 TABLETS EVERY MORNING
     Route: 048
     Dates: start: 20070101
  2. FISH OIL [Suspect]
     Indication: ATTENTION DEFICIT/HYPERACTIVITY DISORDER
     Dosage: 2 CAPSULES, QD
     Route: 048
     Dates: start: 20080201, end: 20080206
  3. CARMAX LIP BALM [Concomitant]
     Indication: LIP DRY
     Dosage: UNK, QD
     Route: 061
     Dates: end: 20080202
  4. CALCIUM [Concomitant]
     Dosage: UNK, QD
     Route: 048
  5. MULTI-VITAMINS [Concomitant]
     Dosage: UNK, QD
     Route: 048
  6. LECITHIN [Concomitant]
     Dosage: UNK, QD
     Route: 048

REACTIONS (9)
  - DYSARTHRIA [None]
  - DYSPHAGIA [None]
  - HYPOAESTHESIA FACIAL [None]
  - HYPOAESTHESIA ORAL [None]
  - LIP SWELLING [None]
  - ORAL DISCOMFORT [None]
  - PARAESTHESIA [None]
  - PARAESTHESIA ORAL [None]
  - SWELLING FACE [None]
